FAERS Safety Report 18394823 (Version 2)
Quarter: 2020Q4

REPORT INFORMATION
  Report Type: Report from Study
  Country: US (occurrence: US)
  Receive Date: 20201016
  Receipt Date: 20201210
  Transmission Date: 20210114
  Serious: Yes (Hospitalization, Other)
  Sender: FDA-Public Use
  Company Number: US-JNJFOC-A-US2020-207851

PATIENT
  Age: 95 Year
  Sex: Female
  Weight: 49.94 kg

DRUGS (7)
  1. OPSUMIT [Suspect]
     Active Substance: MACITENTAN
     Indication: PULMONARY ARTERIAL HYPERTENSION
     Dosage: 10 MG, QD
     Route: 048
     Dates: start: 20200722, end: 20200907
  2. OPSUMIT [Suspect]
     Active Substance: MACITENTAN
     Route: 048
     Dates: start: 20200623, end: 20200907
  3. ADCIRCA [Concomitant]
     Active Substance: TADALAFIL
  4. UPTRAVI [Suspect]
     Active Substance: SELEXIPAG
     Route: 048
     Dates: start: 20200803
  5. UPTRAVI [Suspect]
     Active Substance: SELEXIPAG
     Dosage: 400 MCG, BID
     Route: 048
  6. TYVASO [Concomitant]
     Active Substance: TREPROSTINIL
  7. UPTRAVI [Suspect]
     Active Substance: SELEXIPAG
     Indication: PULMONARY ARTERIAL HYPERTENSION
     Dosage: 200 MCG, BID, TO BE INCREASED BY ADDITIONAL 200 MCG BID ON AN UNSPECIFIED DATE.
     Route: 048

REACTIONS (10)
  - Gait disturbance [Unknown]
  - Feeling abnormal [Unknown]
  - Contusion [Unknown]
  - Haemoglobin decreased [Recovered/Resolved]
  - Dyspnoea [Unknown]
  - Rash [Recovered/Resolved]
  - Fall [Unknown]
  - Dizziness [Not Recovered/Not Resolved]
  - Haematochezia [Recovered/Resolved]
  - Nausea [Unknown]

NARRATIVE: CASE EVENT DATE: 202007
